FAERS Safety Report 22398914 (Version 1)
Quarter: 2023Q2

REPORT INFORMATION
  Report Type: Spontaneous
  Country: US (occurrence: US)
  Receive Date: 20230602
  Receipt Date: 20230602
  Transmission Date: 20230721
  Serious: No
  Sender: FDA-Public Use
  Company Number: US-GLENMARK PHARMACEUTICALS-2023GMK077554

PATIENT

DRUGS (9)
  1. HEATHER [Suspect]
     Active Substance: NORETHINDRONE
     Indication: Ovarian cyst
     Dosage: 0.35 MILLIGRAM, QD
     Route: 048
     Dates: start: 20220817, end: 20221110
  2. HEATHER [Suspect]
     Active Substance: NORETHINDRONE
     Indication: Menstruation irregular
  3. ZYRTEC [Concomitant]
     Active Substance: CETIRIZINE HYDROCHLORIDE
     Indication: Product used for unknown indication
     Dosage: UNK
     Route: 065
  4. VITAMIN D NOS [Concomitant]
     Active Substance: VITAMIN D NOS
     Indication: Product used for unknown indication
     Dosage: UNK
     Route: 065
  5. MAGNESIUM [Concomitant]
     Active Substance: MAGNESIUM
     Indication: Migraine
     Dosage: 400 MILLIGRAM, BID
     Route: 065
  6. PEPCID AC [Concomitant]
     Active Substance: FAMOTIDINE
     Indication: Product used for unknown indication
     Dosage: UNK, PRN
     Route: 065
  7. ALBUTEROL SULFATE [Concomitant]
     Active Substance: ALBUTEROL SULFATE
     Indication: Product used for unknown indication
     Route: 065
  8. FAMCICLOVIR [Concomitant]
     Active Substance: FAMCICLOVIR
     Indication: Herpes simplex
     Dosage: UNK
     Route: 065
  9. PROGESTERONE [Concomitant]
     Active Substance: PROGESTERONE
     Indication: Contraception
     Dosage: UNK
     Route: 065

REACTIONS (19)
  - Dry skin [Unknown]
  - Arthralgia [Unknown]
  - Dry eye [Unknown]
  - Palpitations [Unknown]
  - Fungal infection [Unknown]
  - Erythema [Unknown]
  - Skin burning sensation [Recovering/Resolving]
  - Feeling hot [Recovering/Resolving]
  - Vulvovaginal pain [Unknown]
  - Eye irritation [Unknown]
  - Flatulence [Unknown]
  - Muscle spasms [Unknown]
  - Product use in unapproved indication [Unknown]
  - Cardiomegaly [Unknown]
  - Cardiac disorder [Unknown]
  - Vitamin C decreased [Unknown]
  - Discharge [Unknown]
  - Rash [Recovered/Resolved]
  - Amenorrhoea [Not Recovered/Not Resolved]

NARRATIVE: CASE EVENT DATE: 20220801
